FAERS Safety Report 9796513 (Version 2)
Quarter: 2014Q1

REPORT INFORMATION
  Report Type: Spontaneous
  Country: JP (occurrence: JP)
  Receive Date: 20140103
  Receipt Date: 20140103
  Transmission Date: 20141002
  Serious: Yes (Death, Life-Threatening, Other)
  Sender: FDA-Public Use
  Company Number: JP-BAYER-2013-131701

PATIENT
  Age: 76 Year
  Sex: Male
  Weight: 63 kg

DRUGS (15)
  1. STIVARGA [Suspect]
     Indication: COLORECTAL CANCER
     Dosage: 160 MG, QD
     Route: 048
     Dates: start: 20131003, end: 20131017
  2. IRBESARTAN [Concomitant]
     Dosage: DAILY DOSE 100 MG
     Route: 048
     Dates: end: 20131107
  3. MYSLEE [Concomitant]
     Dosage: DAILY DOSE 10 MG
     Route: 048
     Dates: end: 20131107
  4. NEXIUM [Concomitant]
     Dosage: DAILY DOSE 10 MG
     Route: 048
     Dates: end: 20131107
  5. AMITIZA [Concomitant]
     Dosage: DAILY DOSE 24 ?G
     Route: 048
     Dates: end: 20131105
  6. PURSENNID [Concomitant]
     Dosage: DAILY DOSE 36 MG
     Route: 048
     Dates: end: 20131105
  7. MAGLAX [Concomitant]
     Dosage: DAILY DOSE 990 MG
     Route: 048
     Dates: end: 20131105
  8. LOXONIN [Concomitant]
     Dosage: DAILY DOSE 60 MG
     Route: 048
     Dates: end: 20131107
  9. LOCOID [Concomitant]
     Indication: PROPHYLAXIS
     Dosage: UNK
     Route: 061
     Dates: start: 2013, end: 20131010
  10. JUZENTAIHOTO [Concomitant]
     Dosage: DAILY DOSE 5 G
     Route: 048
     Dates: end: 20131105
  11. NAIXAN [Concomitant]
     Dosage: DAILY DOSE 400 MG
     Route: 048
     Dates: end: 20131107
  12. ENSURE [MINERALS NOS,VITAMINS NOS] [Concomitant]
     Dosage: DAILY DOSE 250 ML
     Route: 048
     Dates: end: 20131108
  13. PREDONINE [Concomitant]
     Dosage: DAILY DOSE 5 MG
     Route: 048
     Dates: start: 20131003, end: 20131017
  14. ADEROXAL [Concomitant]
     Dosage: DAILY DOSE 90 MG
     Route: 048
     Dates: start: 20131003, end: 20131017
  15. HIRUDOID [Concomitant]
     Indication: PROPHYLAXIS
     Dosage: UNK
     Route: 061
     Dates: end: 20131017

REACTIONS (10)
  - Blood bilirubin increased [Not Recovered/Not Resolved]
  - Bilirubin conjugated increased [Not Recovered/Not Resolved]
  - Colon cancer [Fatal]
  - Palmar-plantar erythrodysaesthesia syndrome [Unknown]
  - Malaise [Recovering/Resolving]
  - Decreased appetite [Recovering/Resolving]
  - Blood creatinine decreased [Recovered/Resolved]
  - Neutrophil count increased [Not Recovered/Not Resolved]
  - Blood sodium decreased [Recovered/Resolved]
  - Jaundice [Recovered/Resolved]
